FAERS Safety Report 15451297 (Version 1)
Quarter: 2018Q3

REPORT INFORMATION
  Report Type: Spontaneous
  Country: US (occurrence: US)
  Receive Date: 20180927
  Receipt Date: 20180927
  Transmission Date: 20181010
  Serious: Yes (Other)
  Sender: FDA-Public Use
  Company Number: None

PATIENT
  Age: 72 Year
  Sex: Female
  Weight: 54.43 kg

DRUGS (6)
  1. PANTOPRAZOLE SOD DR 40MG TAB [Suspect]
     Active Substance: PANTOPRAZOLE SODIUM
     Indication: GASTROOESOPHAGEAL REFLUX DISEASE
     Route: 048
     Dates: start: 201807, end: 201807
  2. DULOXETINE HCL [Concomitant]
     Active Substance: DULOXETINE HYDROCHLORIDE
  3. PANTOPRAZOLE SOD DR 40MG TAB [Suspect]
     Active Substance: PANTOPRAZOLE SODIUM
     Indication: GASTRITIS
     Route: 048
     Dates: start: 201807, end: 201807
  4. CLONAZEPAM. [Concomitant]
     Active Substance: CLONAZEPAM
  5. PANTOPRAZOLE [Concomitant]
     Active Substance: PANTOPRAZOLE
  6. PANTOPRAZOLE SOD DR 40MG TAB [Suspect]
     Active Substance: PANTOPRAZOLE SODIUM
     Indication: ABDOMINAL PAIN UPPER
     Route: 048
     Dates: start: 201807, end: 201807

REACTIONS (5)
  - Dyspepsia [None]
  - Gastrooesophageal reflux disease [None]
  - Gastritis [None]
  - Abdominal pain upper [None]
  - Nausea [None]
